FAERS Safety Report 9800697 (Version 1)
Quarter: 2014Q1

REPORT INFORMATION
  Report Type: Spontaneous
  Country: US (occurrence: US)
  Receive Date: 20140107
  Receipt Date: 20140107
  Transmission Date: 20141002
  Serious: No
  Sender: FDA-Public Use
  Company Number: US-009507513-1401USA001082

PATIENT
  Age: 56 Year
  Sex: Female

DRUGS (3)
  1. ZOLINZA [Suspect]
     Indication: LEUKAEMIA
     Dosage: 100 MG, QID
     Route: 048
     Dates: start: 201304
  2. HYDROCODONE [Concomitant]
     Dosage: UNK
  3. BC POWDER (ASPIRIN (+) CAFFEINE) [Concomitant]
     Dosage: UNK

REACTIONS (3)
  - Headache [Not Recovered/Not Resolved]
  - Weight increased [Not Recovered/Not Resolved]
  - Hot flush [Not Recovered/Not Resolved]
